FAERS Safety Report 22631523 (Version 1)
Quarter: 2023Q2

REPORT INFORMATION
  Report Type: Report from Study
  Country: CA (occurrence: CA)
  Receive Date: 20230623
  Receipt Date: 20230623
  Transmission Date: 20230721
  Serious: Yes (Other)
  Sender: FDA-Public Use
  Company Number: CA-002147023-NVSC2023CA108065

PATIENT
  Sex: Female

DRUGS (1)
  1. MAYZENT [Suspect]
     Active Substance: SIPONIMOD
     Indication: Secondary progressive multiple sclerosis
     Dosage: UNK
     Route: 048
     Dates: start: 20230508

REACTIONS (14)
  - Hemiparesis [Unknown]
  - Multiple sclerosis relapse [Unknown]
  - Palpitations [Unknown]
  - Visual impairment [Unknown]
  - Blood pressure fluctuation [Unknown]
  - Lymphoedema [Unknown]
  - Balance disorder [Unknown]
  - Stress [Unknown]
  - Poor quality sleep [Unknown]
  - Diarrhoea [Unknown]
  - Abdominal discomfort [Unknown]
  - Fatigue [Unknown]
  - Dizziness [Unknown]
  - Hypertension [Unknown]

NARRATIVE: CASE EVENT DATE: 20230508
